FAERS Safety Report 15291778 (Version 1)
Quarter: 2018Q3

REPORT INFORMATION
  Report Type: Spontaneous
  Country: US (occurrence: US)
  Receive Date: 20180817
  Receipt Date: 20180817
  Transmission Date: 20181010
  Serious: No
  Sender: FDA-Public Use
  Company Number: US-BAUSCH-BL-2018-021140

PATIENT
  Age: 90 Year
  Sex: Female
  Weight: 69.01 kg

DRUGS (1)
  1. OPCON?A [Suspect]
     Active Substance: NAPHAZOLINE HYDROCHLORIDE\PHENIRAMINE MALEATE
     Indication: NASAL DISCOMFORT
     Route: 045
     Dates: start: 20180801, end: 20180801

REACTIONS (5)
  - Accidental exposure to product [Recovered/Resolved]
  - Gingival discomfort [Recovered/Resolved]
  - Throat irritation [Recovered/Resolved]
  - Wrong drug administered [Recovered/Resolved]
  - Oral discomfort [Recovered/Resolved]

NARRATIVE: CASE EVENT DATE: 20180801
